FAERS Safety Report 11938941 (Version 1)
Quarter: 2016Q1

REPORT INFORMATION
  Report Type: Spontaneous
  Country: DE (occurrence: DE)
  Receive Date: 20160122
  Receipt Date: 20160122
  Transmission Date: 20160526
  Serious: Yes (Death)
  Sender: FDA-Public Use
  Company Number: DE-HORIZON-BUP-0008-2016

PATIENT
  Age: 13 Year
  Sex: Male

DRUGS (1)
  1. AMMONAPS POWDER [Suspect]
     Active Substance: SODIUM PHENYLBUTYRATE
     Indication: ORNITHINE TRANSCARBAMOYLASE DEFICIENCY
     Dosage: 940 MG/G, 5 X 1 G
     Route: 048

REACTIONS (2)
  - Pneumonia [Unknown]
  - Systemic inflammatory response syndrome [Fatal]
